FAERS Safety Report 9689915 (Version 3)
Quarter: 2014Q1

REPORT INFORMATION
  Report Type: Spontaneous
  Country: US (occurrence: US)
  Receive Date: 20131115
  Receipt Date: 20140204
  Transmission Date: 20141002
  Serious: No
  Sender: FDA-Public Use
  Company Number: US-PFIZER INC-2013322880

PATIENT
  Age: 76 Year
  Sex: Male

DRUGS (10)
  1. SUTENT [Suspect]
     Indication: RENAL CANCER
     Dosage: 50 MG (28 DAYS THEN OFF 2 WEEKS), CYCLIC
     Route: 048
     Dates: start: 20131026
  2. SUTENT [Suspect]
     Indication: RENAL CELL CARCINOMA
  3. ASPIRIN [Concomitant]
     Dosage: 324 MG ((81 MG TABLET) 4 TAB), DAILY
     Route: 048
  4. ATORVASTATIN CALCIUM [Concomitant]
     Dosage: UNK
  5. CENTRUM SILVER [Concomitant]
     Dosage: UNK
  6. METOPROLOL TARTRATE [Concomitant]
     Dosage: 75 MG, 2X/DAY
     Route: 048
  7. VITAMIN C [Concomitant]
     Dosage: UNK
  8. VITAMIN E [Concomitant]
     Dosage: 400 IU, 1X/DAY
     Route: 048
  9. RAPAFLO [Concomitant]
     Dosage: 8 MG, 1X/DAY
     Route: 048
  10. ASCORBIC ACID [Concomitant]
     Dosage: 500 MG, 1X/DAY
     Route: 048

REACTIONS (2)
  - Blood pressure increased [Recovered/Resolved]
  - Tooth infection [Recovered/Resolved]
